FAERS Safety Report 4355950-1 (Version None)
Quarter: 2004Q2

REPORT INFORMATION
  Report Type: 
  Country: None (occurrence: None)
  Receive Date: 20040504
  Receipt Date: 20040420
  Transmission Date: 20050107
  Serious: Yes (Hospitalization)
  Sender: FDA-Public Use
  Company Number: 2004-00955 (2)

PATIENT
  Age: 71 Year
  Sex: Male

DRUGS (6)
  1. IMMUCYST (BCG - IT (CONNAUGHT)), AVENTIS PASTEUR LTD., NOT NOT REP, I [Suspect]
     Indication: BLADDER CANCER
     Dosage: 81 MG (91.0 MG); B.IN., BLADDER
     Dates: start: 20040123, end: 20040206
  2. ALLOPURINOL TAB [Concomitant]
  3. BROMHEXINE HYDROCHLORIDE [Concomitant]
  4. MECOBALAMIN [Concomitant]
  5. ADENOSINE TRIPHOSPHATE [Concomitant]
  6. ETHYL LOFLAZEPATE [Concomitant]

REACTIONS (9)
  - BLADDER PAIN [None]
  - DYSURIA [None]
  - GRANULOMA [None]
  - POLLAKIURIA [None]
  - PYREXIA [None]
  - RENAL DISORDER [None]
  - URINARY RETENTION [None]
  - WHITE BLOOD CELL COUNT INCREASED [None]
  - WHITE BLOOD CELLS URINE POSITIVE [None]
